FAERS Safety Report 21611162 (Version 2)
Quarter: 2023Q4

REPORT INFORMATION
  Report Type: Spontaneous
  Country: US (occurrence: US)
  Receive Date: 20221117
  Receipt Date: 20231115
  Transmission Date: 20240109
  Serious: No
  Sender: FDA-Public Use
  Company Number: US-SA-SAC20221111000822

PATIENT
  Age: 36 Year
  Sex: Female

DRUGS (1)
  1. DUPIXENT [Suspect]
     Active Substance: DUPILUMAB
     Indication: Chronic rhinosinusitis with nasal polyps
     Dosage: 300 MG, QOW
     Route: 058
     Dates: start: 202104

REACTIONS (6)
  - COVID-19 [Unknown]
  - Symptom recurrence [Unknown]
  - Product dose omission issue [Unknown]
  - Hypersensitivity [Unknown]
  - Wheezing [Unknown]
  - Sinusitis [Unknown]

NARRATIVE: CASE EVENT DATE: 20221006
